FAERS Safety Report 9206687 (Version 1)
Quarter: 2013Q1

REPORT INFORMATION
  Report Type: Spontaneous
  Country: US (occurrence: None)
  Receive Date: 20120709
  Receipt Date: 20120709
  Transmission Date: 20140127
  Serious: Yes (Other)
  Sender: FDA-Public Use
  Company Number: PHHY2011US46490

PATIENT
  Age: 78 Year
  Sex: Male
  Weight: 65.8 kg

DRUGS (13)
  1. GLEEVEC (IMATINIB) [Suspect]
     Indication: GASTROINTESTINAL STROMAL TUMOUR
     Route: 048
     Dates: start: 20090728
  2. PERDIEM (PSYLLIUM HYDROPHILIC MUCILLOID, SENNA ALEXANDRINA FRUIT, SENNA FRUIT) [Concomitant]
  3. TRAMADOL (TRAMADOL) [Concomitant]
  4. OMEPRAZOLE (OMEPRAZOLE) [Concomitant]
  5. FINASTERIDE (FINASTERIDE) [Concomitant]
  6. URSODIOL (URSODEOXYCHOLIC ACID) [Concomitant]
  7. PANCRELIPASE (PANCRELIPASE) [Concomitant]
  8. MEGACE (MEGESTROL ACETATE) [Concomitant]
  9. COQ10 (UBIDECARENONE) [Concomitant]
  10. IRON (IRON) [Concomitant]
  11. FLECTOR (DICLOFENAC SODIUM) [Concomitant]
  12. VITAMIN B (NO INGREDIENTS/SUBSTANCES) [Concomitant]
  13. ZOFRAN (ONDANSETRON HYDROCHLORIDE) TABLET [Concomitant]

REACTIONS (6)
  - Neoplasm progression [None]
  - Gastrooesophageal reflux disease [None]
  - Hyperchlorhydria [None]
  - Vomiting [None]
  - Haematochezia [None]
  - Neoplasm malignant [None]
